FAERS Safety Report 5169990-6 (Version None)
Quarter: 2006Q4

REPORT INFORMATION
  Report Type: 
  Country: None (occurrence: None)
  Receive Date: 20061212
  Receipt Date: 20061106
  Transmission Date: 20070319
  Serious: Yes (Other)
  Sender: FDA-Public Use
  Company Number: JP-JPN-A200604718

PATIENT
  Age: 79 Year
  Sex: Male

DRUGS (12)
  1. PAXIL [Suspect]
     Indication: DEPRESSIVE SYMPTOM
     Dosage: 10MG PER DAY
     Route: 048
     Dates: start: 20061102, end: 20061106
  2. UNKNOWN MEDICATION [Concomitant]
     Dosage: 3G PER DAY
     Route: 048
     Dates: start: 20060930
  3. EXCELASE [Concomitant]
     Route: 048
     Dates: start: 20060930
  4. NORVASC [Concomitant]
     Dosage: 2.5MG PER DAY
     Route: 048
     Dates: start: 20060930, end: 20061004
  5. ZESTRIL [Concomitant]
     Dosage: 10MG PER DAY
     Route: 048
     Dates: start: 20060930
  6. ASPIRIN [Concomitant]
     Dosage: 100MG PER DAY
     Route: 048
     Dates: start: 20060930
  7. KETOPROFEN [Concomitant]
     Route: 062
     Dates: start: 20061010
  8. LOXONIN [Concomitant]
     Dosage: 60MG PER DAY
     Route: 048
     Dates: start: 20061013, end: 20061023
  9. SELBEX [Concomitant]
     Dosage: 50MG PER DAY
     Route: 048
     Dates: start: 20061013, end: 20061023
  10. PURSENNID [Concomitant]
     Dosage: 12MG PER DAY
     Route: 048
     Dates: start: 20061102
  11. MOBIC [Concomitant]
     Dosage: 5MG PER DAY
     Route: 048
     Dates: start: 20061102
  12. LECICARBON [Concomitant]
     Route: 054
     Dates: start: 20060922, end: 20060922

REACTIONS (9)
  - AGITATION [None]
  - CONFUSIONAL STATE [None]
  - DELUSION [None]
  - HALLUCINATION [None]
  - INSOMNIA [None]
  - PORIOMANIA [None]
  - RESTLESSNESS [None]
  - SEROTONIN SYNDROME [None]
  - VERBAL ABUSE [None]
